FAERS Safety Report 15390712 (Version 1)
Quarter: 2018Q3

REPORT INFORMATION
  Report Type: Spontaneous
  Country: US (occurrence: US)
  Receive Date: 20180909
  Receipt Date: 20180909
  Transmission Date: 20181010
  Serious: Yes (Life-Threatening, Hospitalization, Disabling)
  Sender: FDA-Public Use
  Company Number: None

PATIENT
  Age: 29 Year
  Sex: Male
  Weight: 67.5 kg

DRUGS (18)
  1. LEVAQUIN [Suspect]
     Active Substance: LEVOFLOXACIN
     Indication: UPPER RESPIRATORY TRACT INFECTION
     Dosage: ?          QUANTITY:15 TABLET(S);?
     Route: 048
     Dates: start: 20111015, end: 20111028
  2. ACYCLOVIR. [Concomitant]
     Active Substance: ACYCLOVIR
  3. LYSINE AND NATTOKINASE [Concomitant]
  4. OMEGA 3 [Concomitant]
     Active Substance: OMEGA-3 FATTY ACIDS
  5. KLONOPIN [Concomitant]
     Active Substance: CLONAZEPAM
  6. ARMOUR THYROID [Concomitant]
     Active Substance: THYROID, PORCINE
  7. VITAMIN E [Concomitant]
     Active Substance: .ALPHA.-TOCOPHEROL
  8. COQ10 [Concomitant]
     Active Substance: UBIDECARENONE
  9. PROBIOTIC [Concomitant]
     Active Substance: PROBIOTICS NOS
  10. VITAMIN D [Concomitant]
     Active Substance: CHOLECALCIFEROL
  11. K2 [Concomitant]
     Active Substance: JWH-018
  12. NAC [Concomitant]
  13. ATENOLOL. [Concomitant]
     Active Substance: ATENOLOL
  14. VITAMIN A [Concomitant]
     Active Substance: VITAMIN A
  15. MAGNESIUM [Concomitant]
     Active Substance: MAGNESIUM
  16. VITAMIN C [Concomitant]
     Active Substance: ASCORBIC ACID
  17. VITAMIN B?COMPLEX [Concomitant]
     Active Substance: DEXPANTHENOL\NIACINAMIDE\PYRIDOXINE HYDROCHLORIDE\RIBOFLAVIN 5^-PHOSPHATE SODIUM\THIAMINE HYDROCHLORIDE
  18. TRACE MINERALS [Concomitant]

REACTIONS (32)
  - Anxiety [None]
  - Panic attack [None]
  - Photosensitivity reaction [None]
  - Vitreous floaters [None]
  - Memory impairment [None]
  - Heart rate irregular [None]
  - Hypothyroidism [None]
  - Rash [None]
  - Dizziness [None]
  - Hypohidrosis [None]
  - Asthenia [None]
  - Dyspnoea [None]
  - Weight fluctuation [None]
  - Vertigo [None]
  - Balance disorder [None]
  - Hypersensitivity [None]
  - Tendon pain [None]
  - Gait disturbance [None]
  - Hyperhidrosis [None]
  - Loss of employment [None]
  - Hyperacusis [None]
  - Heart rate increased [None]
  - Pain [None]
  - Eczema [None]
  - Fatigue [None]
  - Diplopia [None]
  - Dysstasia [None]
  - Disability [None]
  - Paraesthesia [None]
  - Autoimmune thyroiditis [None]
  - Disturbance in attention [None]
  - Feeling abnormal [None]

NARRATIVE: CASE EVENT DATE: 20111031
